FAERS Safety Report 7121005-6 (Version None)
Quarter: 2010Q4

REPORT INFORMATION
  Report Type: 
  Country: None (occurrence: None)
  Receive Date: 20101124
  Receipt Date: 20100218
  Transmission Date: 20110411
  Serious: No
  Sender: FDA-Public Use
  Company Number: US-PFIZER INC-2010002903

PATIENT
  Sex: Female
  Weight: 49.9 kg

DRUGS (11)
  1. TIKOSYN [Suspect]
     Indication: HEART RATE IRREGULAR
     Dosage: 125 UG, 2X/DAY
     Route: 048
     Dates: start: 20091101, end: 20091216
  2. TIKOSYN [Interacting]
     Dosage: 125 UG, 3X/DAY
     Route: 048
     Dates: start: 20091216
  3. TIKOSYN [Interacting]
     Dosage: UNK
     Dates: start: 20091101
  4. FOSAMAX [Interacting]
     Indication: BONE DENSITY DECREASED
     Dosage: 70 MG, WEEKLY
  5. RANITIDINE [Concomitant]
     Dosage: UNK
  6. FISH OIL [Concomitant]
     Dosage: UNK
  7. VITAMIN D [Concomitant]
     Dosage: UNK
  8. MULTI-VITAMINS [Concomitant]
     Dosage: UNK
  9. ACETYLSALICYLIC ACID [Concomitant]
     Dosage: 325 MG, UNK
  10. BIOTIN [Concomitant]
     Indication: ALOPECIA
     Dosage: UNK
  11. BIOTIN [Concomitant]
     Indication: NAIL DISORDER

REACTIONS (4)
  - DRUG INEFFECTIVE [None]
  - DRUG INTERACTION [None]
  - HEART RATE IRREGULAR [None]
  - WEIGHT DECREASED [None]
